FAERS Safety Report 5832606-7 (Version None)
Quarter: 2008Q3

REPORT INFORMATION
  Report Type: 
  Country: None (occurrence: None)
  Receive Date: 20080804
  Receipt Date: 20080725
  Transmission Date: 20090109
  Serious: Yes (Other)
  Sender: FDA-Public Use
  Company Number: NA-PFIZER INC-2008062421

PATIENT
  Sex: Female

DRUGS (1)
  1. NORVASC [Suspect]

REACTIONS (1)
  - ATRIOVENTRICULAR BLOCK [None]
